FAERS Safety Report 4775013-0 (Version None)
Quarter: 2005Q3

REPORT INFORMATION
  Report Type: 
  Country: None (occurrence: None)
  Receive Date: 20050920
  Receipt Date: 20050906
  Transmission Date: 20060218
  Serious: Yes (Life-Threatening)
  Sender: FDA-Public Use
  Company Number: TNZDE200500085

PATIENT
  Age: 75 Year
  Sex: Male
  Weight: 87 kg

DRUGS (2)
  1. INNOHEP [Suspect]
     Indication: PULMONARY EMBOLISM
     Dosage: 14000 IU, SUBCUTANEOUS
     Route: 058
     Dates: start: 20050809, end: 20050816
  2. ASPIRIN [Concomitant]

REACTIONS (3)
  - COMPARTMENT SYNDROME [None]
  - INTERNATIONAL NORMALISED RATIO DECREASED [None]
  - SOFT TISSUE HAEMORRHAGE [None]
